FAERS Safety Report 8090621 (Version 3)
Quarter: 2014Q4

REPORT INFORMATION
  Report Type: Spontaneous
  Country: JP (occurrence: None)
  Receive Date: 20110808
  Receipt Date: 20141211
  Transmission Date: 20150529
  Serious: Yes (Hospitalization)
  Sender: FDA-Public Use
  Company Number: 2009JP007484

PATIENT
  Age: 57 Year
  Sex: Female
  Weight: 48 kg

DRUGS (13)
  1. AMLODIN (AMLODIPINE BESILATE) [Concomitant]
  2. ROCEPHIN (CEFTRIAXONE SODIUM HYDRATE) [Concomitant]
  3. BANAN (CEFPODOXIME PROXETIL) [Concomitant]
  4. NU-LOTAN (LOSARTAN POTASSIUM) [Concomitant]
  5. FOSAMAC (ALENDRONATE SODIUM) [Concomitant]
  6. PROGRAF [Suspect]
     Active Substance: TACROLIMUS\TACROLIMUS ANHYDROUS
     Indication: LUPUS NEPHRITIS
     Dosage: 2.5 MG, UNKNOWN FREQ., ORAL
     Route: 048
     Dates: start: 20070724, end: 20100510
  7. COMELIAN (DILAZEP DIHYDROCHLORIDE) [Concomitant]
  8. GASTER D (FAMOLTIDINE) [Concomitant]
  9. METHYLPREDNISOLONE SODIUM SUCCINATE (METHYLPREDNISOLONE SODIUM SUCCINATE) [Concomitant]
  10. CRAVIT (LEVOFLOXACIN HYDRATE) [Concomitant]
  11. PREDNISOLONE. [Concomitant]
     Active Substance: PREDNISOLONE
  12. ZOSYN (TAZOBACTAM SODIUM_PIPERACILLIN SODIUM) [Concomitant]
  13. ISODINE (POVIDONE-IODINE) [Concomitant]

REACTIONS (6)
  - Nephrolithiasis [None]
  - Escherichia infection [None]
  - Condition aggravated [None]
  - Pyelonephritis acute [None]
  - Cystitis [None]
  - Lupus nephritis [None]

NARRATIVE: CASE EVENT DATE: 20090804
